FAERS Safety Report 23621782 (Version 2)
Quarter: 2025Q2

REPORT INFORMATION
  Report Type: Report from Study
  Country: CA (occurrence: CA)
  Receive Date: 20240312
  Receipt Date: 20250609
  Transmission Date: 20250717
  Serious: Yes (Hospitalization)
  Sender: TAKEDA
  Company Number: CA-TAKEDA-2024TUS020254

PATIENT
  Sex: Male

DRUGS (9)
  1. VEDOLIZUMAB [Suspect]
     Active Substance: VEDOLIZUMAB
     Indication: Colitis ulcerative
  2. VEDOLIZUMAB [Suspect]
     Active Substance: VEDOLIZUMAB
  3. VEDOLIZUMAB [Suspect]
     Active Substance: VEDOLIZUMAB
  4. Cortiment [Concomitant]
     Dosage: 9 MILLIGRAM, QD
     Dates: start: 20230824
  5. BISOPROLOL [Concomitant]
     Active Substance: BISOPROLOL
  6. CHOLESTEROL [Concomitant]
     Active Substance: CHOLESTEROL
  7. ALBUTEROL [Concomitant]
     Active Substance: ALBUTEROL
  8. ATIVAN [Concomitant]
     Active Substance: LORAZEPAM
  9. LANSOPRAZOLE [Concomitant]
     Active Substance: LANSOPRAZOLE

REACTIONS (2)
  - Rib fracture [Unknown]
  - Back injury [Unknown]
